FAERS Safety Report 11617670 (Version 1)
Quarter: 2015Q4

REPORT INFORMATION
  Report Type: Spontaneous
  Country: US (occurrence: US)
  Receive Date: 20151009
  Receipt Date: 20151009
  Transmission Date: 20160304
  Serious: No
  Sender: FDA-Public Use
  Company Number: US-GLAXOSMITHKLINE-US2015144185

PATIENT
  Age: 63 Year
  Sex: Female

DRUGS (1)
  1. BENLYSTA [Suspect]
     Active Substance: BELIMUMAB
     Indication: SYSTEMIC LUPUS ERYTHEMATOSUS
     Dosage: 520 MG, Z
     Route: 041

REACTIONS (10)
  - Dyspepsia [Recovering/Resolving]
  - Musculoskeletal chest pain [Recovering/Resolving]
  - Back pain [Recovering/Resolving]
  - Abdominal mass [Recovered/Resolved]
  - Headache [Recovering/Resolving]
  - Nausea [Recovering/Resolving]
  - Eyelid margin crusting [Recovering/Resolving]
  - Abdominal pain [Recovering/Resolving]
  - Ocular hyperaemia [Recovering/Resolving]
  - Constipation [Recovering/Resolving]

NARRATIVE: CASE EVENT DATE: 20150924
